FAERS Safety Report 13861873 (Version 5)
Quarter: 2021Q4

REPORT INFORMATION
  Report Type: Report from Study
  Country: US (occurrence: US)
  Receive Date: 20170811
  Receipt Date: 20211028
  Transmission Date: 20220303
  Serious: Yes (Life-Threatening, Hospitalization)
  Sender: FDA-Public Use
  Company Number: US-AMGEN-USACT2017122617

PATIENT
  Age: 78 Year
  Sex: Female
  Weight: 85.2 kg

DRUGS (9)
  1. EVOLOCUMAB [Suspect]
     Active Substance: EVOLOCUMAB
     Indication: Dyslipidaemia
     Dosage: UNK
     Route: 058
     Dates: start: 20160913
  2. ROSUVASTATIN [Concomitant]
     Active Substance: ROSUVASTATIN
     Indication: Dyslipidaemia
     Dosage: 20 MILLIGRAM
     Dates: start: 20120605
  3. ASPIRIN [Concomitant]
     Active Substance: ASPIRIN
     Dosage: 81 MILLIGRAM
     Dates: start: 19971014, end: 20200521
  4. INSULIN NOS [Concomitant]
     Active Substance: INSULIN NOS
     Dosage: UNK
  5. PRASUGREL [Concomitant]
     Active Substance: PRASUGREL
     Dosage: UNK
  6. FISH OIL [Concomitant]
     Active Substance: FISH OIL
     Dosage: 1000 MILLIGRAM
     Route: 048
     Dates: start: 20160913, end: 20200521
  7. METFORMIN [Concomitant]
     Active Substance: METFORMIN HYDROCHLORIDE
     Dosage: 500 MILLIGRAM
     Dates: start: 20120206, end: 20200521
  8. PRANDIN [Concomitant]
     Active Substance: REPAGLINIDE
     Dosage: 2 MILLIGRAM
     Dates: start: 20170717, end: 20200521
  9. COREG [Concomitant]
     Active Substance: CARVEDILOL
     Dosage: 25 MILLIGRAM
     Dates: start: 20150826, end: 20190418

REACTIONS (3)
  - Cardiac arrest [Recovered/Resolved]
  - Ventricular tachycardia [Recovered/Resolved]
  - Musculoskeletal chest pain [Recovered/Resolved]

NARRATIVE: CASE EVENT DATE: 20170719
